FAERS Safety Report 8480599-9 (Version None)
Quarter: 2012Q3

REPORT INFORMATION
  Report Type: 
  Country: None (occurrence: None)
  Receive Date: 20120702
  Receipt Date: 20120621
  Transmission Date: 20120928
  Serious: No
  Sender: FDA-Public Use
  Company Number: US-BIOGENIDEC-2012BI022203

PATIENT
  Age: 52 Year
  Sex: Female

DRUGS (3)
  1. AVONEX [Suspect]
     Route: 030
  2. AVONEX [Suspect]
     Indication: MULTIPLE SCLEROSIS
     Route: 030
     Dates: start: 20011221
  3. ACETAMINOPHEN [Concomitant]
     Indication: PREMEDICATION

REACTIONS (3)
  - CONFUSIONAL STATE [None]
  - HEADACHE [None]
  - INFLUENZA LIKE ILLNESS [None]
